FAERS Safety Report 8713221 (Version 2)
Quarter: 2013Q4

REPORT INFORMATION
  Report Type: Report from Study
  Country: US (occurrence: US)
  Receive Date: 20120808
  Receipt Date: 20131010
  Transmission Date: 20140711
  Serious: Yes (Death, Hospitalization)
  Sender: FDA-Public Use
  Company Number: US-ROCHE-1096512

PATIENT
  Age: 61 Year
  Sex: Female
  Weight: 49.3 kg

DRUGS (2)
  1. BEVACIZUMAB [Suspect]
     Indication: OVARIAN EPITHELIAL CANCER
     Dosage: DATE OF LAST DSOE RECEIVED 17/JUL/2012
     Route: 065
     Dates: start: 20120605
  2. BLINDED EVEROLIMUS [Suspect]
     Indication: OVARIAN EPITHELIAL CANCER
     Dosage: DATE OF LAST DOSE RECEIVED 17/JUL/2012
     Route: 065
     Dates: start: 20120605

REACTIONS (5)
  - Ileal perforation [Fatal]
  - Vomiting [Recovering/Resolving]
  - Nausea [Recovering/Resolving]
  - Decreased appetite [Recovering/Resolving]
  - Oesophagitis [Recovering/Resolving]
